FAERS Safety Report 4948741-1 (Version None)
Quarter: 2006Q1

REPORT INFORMATION
  Report Type: 
  Country: None (occurrence: None)
  Receive Date: 20060317
  Receipt Date: 20060306
  Transmission Date: 20060701
  Serious: Yes (Other)
  Sender: FDA-Public Use
  Company Number: 2006032997

PATIENT
  Age: 39 Year
  Sex: Female
  Weight: 77.1115 kg

DRUGS (5)
  1. NEURONTIN [Suspect]
     Indication: NEURALGIA
     Dosage: 150 MG (50 MG, 3 IN 1 D)
  2. LYRICA [Suspect]
     Indication: NEURALGIA
     Dosage: 150 MG (50 MG, 3 IN 1 D)
     Dates: start: 20051101
  3. METHADONE HCL [Concomitant]
  4. DITROPAN [Concomitant]
  5. BACLOFEN [Concomitant]

REACTIONS (5)
  - ABDOMINAL DISTENSION [None]
  - NEURALGIA [None]
  - NEUROGENIC BLADDER [None]
  - OEDEMA PERIPHERAL [None]
  - OVARIAN CYST [None]
